FAERS Safety Report 7078684-1 (Version None)
Quarter: 2010Q4

REPORT INFORMATION
  Report Type: 
  Country: None (occurrence: None)
  Receive Date: 20101101
  Receipt Date: 20101101
  Transmission Date: 20110411
  Serious: Yes (Hospitalization)
  Sender: FDA-Public Use
  Company Number: None

PATIENT
  Age: 44 Year
  Sex: Male
  Weight: 100.9 kg

DRUGS (1)
  1. DIVALPROEX SODIUM [Suspect]
     Indication: BIPOLAR I DISORDER
     Dosage: 1000 MG AT BEDTIME PO
     Route: 048
     Dates: start: 20080609, end: 20100730

REACTIONS (2)
  - AMMONIA INCREASED [None]
  - CONFUSIONAL STATE [None]
